FAERS Safety Report 4316488-0 (Version None)
Quarter: 2004Q1

REPORT INFORMATION
  Report Type: 
  Country: None (occurrence: None)
  Receive Date: 20040311
  Receipt Date: 20040227
  Transmission Date: 20041129
  Serious: Yes (Disabling)
  Sender: FDA-Public Use
  Company Number: GB-JNJFOC-20040201239

PATIENT
  Age: 81 Year
  Sex: Female
  Weight: 85 kg

DRUGS (4)
  1. RISPERDAL CONSTA [Suspect]
     Indication: DELUSION
     Dosage: 25 MG, 1 IN 2 WEEK, INTRA-MUSCULAR
     Route: 030
     Dates: start: 20040206, end: 20040206
  2. RISPERDAL [Concomitant]
  3. THYROXINE (LEVOTHYROXINE SODIUM) [Concomitant]
  4. AMOXICILLIN [Concomitant]

REACTIONS (4)
  - EYELID OEDEMA [None]
  - FACE OEDEMA [None]
  - RASH ERYTHEMATOUS [None]
  - RASH PRURITIC [None]
